FAERS Safety Report 6180829-2 (Version None)
Quarter: 2009Q2

REPORT INFORMATION
  Report Type: 
  Country: None (occurrence: None)
  Receive Date: 20090504
  Receipt Date: 20090216
  Transmission Date: 20091009
  Serious: Yes (Hospitalization)
  Sender: FDA-Public Use
  Company Number: KV200900013

PATIENT
  Age: 60 Year
  Sex: Male

DRUGS (8)
  1. HYDROMORPHONE HCL [Suspect]
     Indication: CANCER PAIN
     Dosage: 2 MG, QID PRN PAIN, ORAL
     Route: 048
     Dates: start: 20081121
  2. FINASTERIDE [Concomitant]
  3. NEURONTIN [Concomitant]
  4. COUMADIN [Concomitant]
  5. HYDROCHLOROTHIAZIDE [Concomitant]
  6. NORVASC /00972401/ (AMLODIPINE) [Concomitant]
  7. SIMVASTATIN [Concomitant]
  8. LEXAPRO [Concomitant]

REACTIONS (3)
  - DYSPHONIA [None]
  - PLEURAL EFFUSION [None]
  - PRODUCT QUALITY ISSUE [None]
